FAERS Safety Report 9222440 (Version 1)
Quarter: 2013Q2

REPORT INFORMATION
  Report Type: Spontaneous
  Country: US (occurrence: US)
  Receive Date: 20130410
  Receipt Date: 20130410
  Transmission Date: 20140414
  Serious: Yes (Other)
  Sender: FDA-Public Use
  Company Number: US-BAYER-2013-044879

PATIENT
  Age: 43 Year
  Sex: Male
  Weight: 104 kg

DRUGS (2)
  1. ALEVE CAPLET [Suspect]
     Indication: SWELLING
     Dosage: 1 DF, QD WITH FOOD
     Route: 048
     Dates: start: 201006
  2. ALEVE CAPLET [Suspect]
     Indication: PAIN

REACTIONS (2)
  - Blood urine present [Not Recovered/Not Resolved]
  - Incorrect drug administration duration [None]
